FAERS Safety Report 23133489 (Version 1)
Quarter: 2023Q4

REPORT INFORMATION
  Report Type: Report from Study
  Country: CA (occurrence: CA)
  Receive Date: 20231101
  Receipt Date: 20231101
  Transmission Date: 20240110
  Serious: Yes (Death)
  Sender: FDA-Public Use
  Company Number: CA-BEH-2023164893

PATIENT
  Age: 82 Year
  Sex: Male
  Weight: 70.3 kg

DRUGS (1)
  1. HIZENTRA [Suspect]
     Active Substance: HUMAN IMMUNOGLOBULIN G
     Indication: Secondary immunodeficiency
     Dosage: 9 GRAM, QW
     Route: 065
     Dates: start: 20180920

REACTIONS (1)
  - Death [Fatal]

NARRATIVE: CASE EVENT DATE: 20230725
